FAERS Safety Report 10143125 (Version 1)
Quarter: 2014Q2

REPORT INFORMATION
  Report Type: Spontaneous
  Country: US (occurrence: None)
  Receive Date: 20140429
  Receipt Date: 20140429
  Transmission Date: 20141212
  Serious: Yes (Life-Threatening, Hospitalization, Disabling)
  Sender: FDA-Public Use
  Company Number: None

PATIENT
  Age: 72 Year
  Sex: Female
  Weight: 83.92 kg

DRUGS (1)
  1. HYDROXYCHLOROQUINE 200MG [Suspect]
     Indication: SYSTEMIC LUPUS ERYTHEMATOSUS
     Dosage: 2 PILLS ONCE DAILY TAKEN BY MOUTH
     Route: 048

REACTIONS (5)
  - Atrial fibrillation [None]
  - Pericardial effusion [None]
  - Ejection fraction decreased [None]
  - Muscle injury [None]
  - Muscular weakness [None]
